FAERS Safety Report 4509955-8 (Version None)
Quarter: 2004Q4

REPORT INFORMATION
  Report Type: 
  Country: None (occurrence: None)
  Receive Date: 20041119
  Receipt Date: 20041110
  Transmission Date: 20050328
  Serious: Yes (Death)
  Sender: FDA-Public Use
  Company Number: US-JNJFOC-20041103366

PATIENT
  Sex: Male

DRUGS (1)
  1. EXTRA STRENGTH TYLENOL [Suspect]
     Indication: SUICIDE ATTEMPT
     Dates: start: 20060601, end: 20040601

REACTIONS (2)
  - OVERDOSE [None]
  - SUICIDE ATTEMPT [None]
